FAERS Safety Report 17668266 (Version 1)
Quarter: 2020Q2

REPORT INFORMATION
  Report Type: Spontaneous
  Country: DE (occurrence: DE)
  Receive Date: 20200414
  Receipt Date: 20200414
  Transmission Date: 20200713
  Serious: Yes (Hospitalization, Other)
  Sender: FDA-Public Use
  Company Number: DE-AUROBINDO-AUR-APL-2020-017773

PATIENT
  Age: 47 Year
  Sex: Male

DRUGS (6)
  1. LAMOTRIGIN DESITIN [Concomitant]
     Active Substance: LAMOTRIGINE
     Indication: SEIZURE
     Dosage: 300 MILLIGRAM, ONCE A DAY (1-0-2)
     Route: 048
  2. LEVETIRACETAM UCB [Concomitant]
     Active Substance: LEVETIRACETAM
     Indication: SEIZURE
     Dosage: 3000 MILLIGRAM, ONCE A DAY (1-0-2)
     Route: 048
  3. MEROPENEM 1000MG [Suspect]
     Active Substance: MEROPENEM
     Indication: SEPSIS
  4. DELIX [Concomitant]
     Indication: BLOOD PRESSURE INCREASED
     Dosage: 5 MILLIGRAM, ONCE A DAY (0-0-1)
     Route: 048
  5. MEROPENEM 1000MG [Suspect]
     Active Substance: MEROPENEM
     Indication: BACTERIAL INFECTION
     Dosage: 1 GRAM, 3 TIMES A DAY (1-1-1)
     Route: 042
  6. VIMPAT [Concomitant]
     Active Substance: LACOSAMIDE
     Indication: SEIZURE
     Dosage: UNK (1-0-1)
     Route: 042

REACTIONS (2)
  - Acute hepatic failure [Recovering/Resolving]
  - International normalised ratio increased [Recovering/Resolving]

NARRATIVE: CASE EVENT DATE: 20200229
